FAERS Safety Report 4365138-6 (Version None)
Quarter: 2004Q2

REPORT INFORMATION
  Report Type: 
  Country: None (occurrence: None)
  Receive Date: 20040520
  Receipt Date: 20040507
  Transmission Date: 20050107
  Serious: Yes (Other)
  Sender: FDA-Public Use
  Company Number: 206416

PATIENT
  Age: 83 Year
  Sex: Female

DRUGS (8)
  1. HERCEPTIN [Suspect]
     Indication: BREAST CANCER METASTATIC
     Dosage: SEE IMAGE, INTRAVENOUS
     Route: 042
  2. DILTIAZEM HYDROCHLORIDE [Concomitant]
  3. ISOSORBIDE MONONITRATE [Concomitant]
  4. BUMETANIDE [Concomitant]
  5. ATORVASTATIN (ATORVASTATIN CALCIUM) [Concomitant]
  6. NITROGLYCERIN [Concomitant]
  7. LOSARTAN (LOSARTAN POTASSIUM) [Concomitant]
  8. ASPIRIN [Concomitant]

REACTIONS (2)
  - ANGINA PECTORIS [None]
  - BLOOD PRESSURE INCREASED [None]
